FAERS Safety Report 9483265 (Version 1)
Quarter: 2013Q3

REPORT INFORMATION
  Report Type: Report from Study
  Country: CA (occurrence: CA)
  Receive Date: 20130828
  Receipt Date: 20130828
  Transmission Date: 20140515
  Serious: Yes (Other)
  Sender: FDA-Public Use
  Company Number: CA-ABBOTT-13P-028-1137055-00

PATIENT
  Sex: Female

DRUGS (1)
  1. HUMIRA [Suspect]
     Indication: CROHN^S DISEASE
     Dosage: UNKNOWN
     Route: 058
     Dates: start: 20120911, end: 20130409

REACTIONS (2)
  - Large intestinal obstruction [Recovered/Resolved]
  - Cystitis [Unknown]
